FAERS Safety Report 23265850 (Version 1)
Quarter: 2023Q4

REPORT INFORMATION
  Report Type: Spontaneous
  Country: TN (occurrence: TN)
  Receive Date: 20231206
  Receipt Date: 20231206
  Transmission Date: 20240110
  Serious: Yes (Death, Hospitalization)
  Sender: FDA-Public Use
  Company Number: TN-STRIDES ARCOLAB LIMITED-2023SP018104

PATIENT
  Age: 24 Year
  Sex: Male

DRUGS (6)
  1. DOXORUBICIN [Suspect]
     Active Substance: DOXORUBICIN
     Indication: Diffuse large B-cell lymphoma stage IV
     Dosage: UNK
     Route: 065
  2. PREDNISOLONE [Suspect]
     Active Substance: PREDNISOLONE
     Indication: Diffuse large B-cell lymphoma stage IV
     Dosage: UNK
     Route: 065
  3. METHOTREXATE [Suspect]
     Active Substance: METHOTREXATE
     Indication: Diffuse large B-cell lymphoma stage IV
     Dosage: 15 MILLIGRAM (INJECTION)
  4. RITUXIMAB [Suspect]
     Active Substance: RITUXIMAB
     Indication: Diffuse large B-cell lymphoma stage IV
     Dosage: UNK
     Route: 065
  5. CYCLOPHOSPHAMIDE [Suspect]
     Active Substance: CYCLOPHOSPHAMIDE
     Indication: Diffuse large B-cell lymphoma stage IV
     Dosage: UNK
     Route: 065
  6. VINCRISTINE [Suspect]
     Active Substance: VINCRISTINE
     Indication: Diffuse large B-cell lymphoma stage IV
     Dosage: UNK
     Route: 065

REACTIONS (3)
  - Malignant neoplasm progression [Fatal]
  - Drug ineffective [Fatal]
  - Cerebral venous thrombosis [Recovered/Resolved]
